FAERS Safety Report 17713137 (Version 1)
Quarter: 2020Q2

REPORT INFORMATION
  Report Type: Spontaneous
  Country: US (occurrence: US)
  Receive Date: 20200427
  Receipt Date: 20200427
  Transmission Date: 20200714
  Serious: Yes (Life-Threatening)
  Sender: FDA-Public Use
  Company Number: None

PATIENT
  Age: 38 Year
  Sex: Female
  Weight: 108 kg

DRUGS (5)
  1. FLUTICASONE PROPIONATE (GLUCOCORTICOID) [Suspect]
     Active Substance: FLUTICASONE PROPIONATE
     Indication: NASAL POLYPS
     Dosage: ?          OTHER STRENGTH:MCG;QUANTITY:1 SPRAY(S);OTHER ROUTE:SPRAYED IN NOSE?
     Dates: start: 20200424, end: 20200425
  2. IBUPROFEN. [Concomitant]
     Active Substance: IBUPROFEN
  3. DHEA [Concomitant]
     Active Substance: PRASTERONE
  4. MAGNESIUM [Concomitant]
     Active Substance: MAGNESIUM
  5. VITAMIN D3 [Concomitant]
     Active Substance: CHOLECALCIFEROL

REACTIONS (1)
  - Suicidal ideation [None]

NARRATIVE: CASE EVENT DATE: 20200425
